FAERS Safety Report 8185233-3 (Version None)
Quarter: 2012Q1

REPORT INFORMATION
  Report Type: 
  Country: None (occurrence: None)
  Receive Date: 20120305
  Receipt Date: 20120224
  Transmission Date: 20120608
  Serious: Yes (Other)
  Sender: FDA-Public Use
  Company Number: PHHY2012BR006565

PATIENT
  Sex: Male

DRUGS (4)
  1. DIOVAN [Suspect]
     Dosage: 160 MG, TWO TABLETS DAILY
  2. DIOVAN [Suspect]
     Dosage: 160 MG, UNK
  3. SYMBICORT [Concomitant]
     Indication: BRONCHITIS
     Dosage: 1 DF X (12/400 MCG), QD
  4. DIOVAN [Suspect]
     Dosage: 320 MG, UNK

REACTIONS (3)
  - HYPERTENSION [None]
  - CAROTID ARTERY OCCLUSION [None]
  - BLOOD CHOLESTEROL DECREASED [None]
